FAERS Safety Report 4933480-3 (Version None)
Quarter: 2006Q1

REPORT INFORMATION
  Report Type: 
  Country: None (occurrence: None)
  Receive Date: 20060106
  Receipt Date: 20050809
  Transmission Date: 20060701
  Serious: No
  Sender: FDA-Public Use
  Company Number: 200511606BWH

PATIENT
  Age: 74 Year
  Sex: Male
  Weight: 99.7913 kg

DRUGS (10)
  1. LEVITRA [Suspect]
     Indication: ERECTILE DYSFUNCTION
     Dosage: 10 MG, TOTAL DAILY, ORAL
     Route: 048
     Dates: start: 20050701
  2. PREDNISONE [Concomitant]
  3. COUMADIN [Concomitant]
  4. FLOMAX [Concomitant]
  5. ZYRTEC [Concomitant]
  6. PATOLOC [Concomitant]
  7. ADVAIR DISKUS 100/50 [Concomitant]
  8. FLONASE [Concomitant]
  9. SALBUTAMOL [Concomitant]
  10. SPRIVIA [Concomitant]

REACTIONS (1)
  - ERECTILE DYSFUNCTION [None]
